FAERS Safety Report 18510631 (Version 1)
Quarter: 2020Q4

REPORT INFORMATION
  Report Type: Spontaneous
  Country: US (occurrence: US)
  Receive Date: 20201116
  Receipt Date: 20201116
  Transmission Date: 20210114
  Serious: Yes (Death)
  Sender: FDA-Public Use
  Company Number: None

PATIENT
  Age: 73 Year
  Weight: 56.34 kg

DRUGS (17)
  1. ZOLPIDEM [Concomitant]
     Active Substance: ZOLPIDEM TARTRATE
  2. OMEPRAZOLE. [Concomitant]
     Active Substance: OMEPRAZOLE
  3. PEG [Concomitant]
     Active Substance: POLYETHYLENE GLYCOLS
  4. APAP [Concomitant]
     Active Substance: ACETAMINOPHEN
  5. VERZENIO [Suspect]
     Active Substance: ABEMACICLIB
     Indication: HER2 POSITIVE BREAST CANCER
     Route: 048
     Dates: start: 20200923
  6. TYLENOL [Concomitant]
     Active Substance: ACETAMINOPHEN
  7. OFIRMEV [Concomitant]
     Active Substance: ACETAMINOPHEN
  8. VALSARTAN. [Concomitant]
     Active Substance: VALSARTAN
  9. TRIAMCINOLONE [Concomitant]
     Active Substance: TRIAMCINOLONE
  10. MORPHINE [Concomitant]
     Active Substance: MORPHINE
  11. LIPITOR [Concomitant]
     Active Substance: ATORVASTATIN CALCIUM
  12. ZOFRAN [Concomitant]
     Active Substance: ONDANSETRON HYDROCHLORIDE
  13. ZOFRAN [Concomitant]
     Active Substance: ONDANSETRON HYDROCHLORIDE
  14. CALCIUM +_D [Concomitant]
  15. NORVASC [Concomitant]
     Active Substance: AMLODIPINE BESYLATE
  16. FASLODEX [Concomitant]
     Active Substance: FULVESTRANT
  17. TRIAMTERENE-HCTZ [Concomitant]
     Active Substance: HYDROCHLOROTHIAZIDE\TRIAMTERENE

REACTIONS (1)
  - Death [None]

NARRATIVE: CASE EVENT DATE: 20201031
